FAERS Safety Report 9906631 (Version 3)
Quarter: 2014Q3

REPORT INFORMATION
  Report Type: Spontaneous
  Country: US (occurrence: US)
  Receive Date: 20140218
  Receipt Date: 20140718
  Transmission Date: 20150326
  Serious: Yes (Hospitalization, Disabling, Other)
  Sender: FDA-Public Use
  Company Number: US-BAYER-2014-025471

PATIENT
  Age: 35 Year
  Sex: Female
  Weight: 73 kg

DRUGS (2)
  1. ZOLOFT [Concomitant]
     Active Substance: SERTRALINE HYDROCHLORIDE
  2. MIRENA [Suspect]
     Active Substance: LEVONORGESTREL
     Indication: CONTRACEPTION
     Dosage: 20 MCG/24HR, CONT
     Route: 015
     Dates: start: 20080325, end: 20100408

REACTIONS (12)
  - Uterine perforation [None]
  - General physical health deterioration [None]
  - Ectopic pregnancy with contraceptive device [None]
  - Procedural pain [None]
  - Drug ineffective [None]
  - Emotional distress [None]
  - Injury [None]
  - Ruptured ectopic pregnancy [None]
  - Deformity [None]
  - Anxiety [None]
  - Anhedonia [None]
  - Pain [None]
